FAERS Safety Report 8905887 (Version 1)
Quarter: 2012Q4

REPORT INFORMATION
  Report Type: 
  Country: ES (occurrence: ES)
  Receive Date: 20121113
  Receipt Date: 20121113
  Transmission Date: 20130627
  Serious: Yes (Other)
  Sender: FDA-Public Use
  Company Number: ES-BAXTER-2012BAX022520

PATIENT
  Age: 70 Year
  Sex: Female
  Weight: 87 kg

DRUGS (2)
  1. GENOXAL [Suspect]
     Indication: BREAST CANCER
     Route: 042
     Dates: start: 20120125, end: 20120125
  2. DOCETAXEL [Suspect]
     Indication: BREAST CANCER
     Route: 042
     Dates: start: 20120125, end: 20120125

REACTIONS (3)
  - Dyspnoea [Recovered/Resolved]
  - Hypertension [Recovered/Resolved]
  - Flushing [Recovered/Resolved]
